FAERS Safety Report 20737536 (Version 1)
Quarter: 2022Q2

REPORT INFORMATION
  Report Type: Spontaneous
  Country: US (occurrence: US)
  Receive Date: 20220422
  Receipt Date: 20220422
  Transmission Date: 20220721
  Serious: Yes (Other)
  Sender: FDA-Public Use
  Company Number: US-SUN PHARMACEUTICAL INDUSTRIES LTD-2022R1-333579

PATIENT
  Age: 38 Year
  Sex: Female

DRUGS (2)
  1. LEUPROLIDE [Suspect]
     Active Substance: LEUPROLIDE
     Indication: Leiomyoma
     Dosage: UNK
     Route: 030
  2. LETROZOLE [Suspect]
     Active Substance: LETROZOLE
     Indication: Leiomyoma
     Dosage: 2.5 MILLIGRAM, DAILY
     Route: 048

REACTIONS (1)
  - Disease progression [Unknown]
